FAERS Safety Report 9382267 (Version 1)
Quarter: 2013Q3

REPORT INFORMATION
  Report Type: Spontaneous
  Country: US (occurrence: None)
  Receive Date: 20130702
  Receipt Date: 20130702
  Transmission Date: 20140515
  Serious: Yes (Life-Threatening, Other)
  Sender: FDA-Public Use
  Company Number: None

PATIENT
  Age: 51 Year
  Sex: Female
  Weight: 108.86 kg

DRUGS (11)
  1. ZOCOR [Suspect]
     Indication: HYPERLIPIDAEMIA
     Dosage: ZOCOR 1 TAB ONE DAILY IN PM BY MOUTH
     Route: 048
  2. ZOCOR [Suspect]
     Dosage: ZOCOR 1 TAB ONE DAILY IN PM BY MOUTH
     Route: 048
  3. AMLODIPINE [Concomitant]
  4. METOPROLOL [Concomitant]
  5. LANTUS [Concomitant]
  6. METFORMIN [Concomitant]
  7. HUMALOG [Concomitant]
  8. PLAVIX [Concomitant]
  9. ASPIRIN [Concomitant]
  10. OMEPRAZOLE [Concomitant]
  11. MECLIZINE [Concomitant]

REACTIONS (1)
  - Drug ineffective [None]
